FAERS Safety Report 19419630 (Version 1)
Quarter: 2021Q2

REPORT INFORMATION
  Report Type: Spontaneous
  Country: US (occurrence: US)
  Receive Date: 20210615
  Receipt Date: 20210615
  Transmission Date: 20210717
  Serious: No
  Sender: FDA-Public Use
  Company Number: US-BRISTOL-MYERS SQUIBB COMPANY-BMS-2021-057825

PATIENT
  Age: 23 Month
  Sex: Female

DRUGS (1)
  1. BELATACEPT [Suspect]
     Active Substance: BELATACEPT
     Indication: MYELODYSPLASTIC SYNDROME
     Dosage: 10 MILLIGRAM/KILOGRAM, Q4WK
     Route: 065

REACTIONS (2)
  - Lymphopenia [Unknown]
  - Intentional product use issue [Unknown]
